FAERS Safety Report 17042609 (Version 1)
Quarter: 2019Q4

REPORT INFORMATION
  Report Type: Spontaneous
  Country: SE (occurrence: SE)
  Receive Date: 20191118
  Receipt Date: 20191118
  Transmission Date: 20200122
  Serious: Yes (Other)
  Sender: FDA-Public Use
  Company Number: SE-CIRCASSIA PHARMACEUTICALS INC.-2019SE011311

PATIENT
  Age: 59 Year
  Sex: Female

DRUGS (1)
  1. ACLIDINIUM BROMIDE. [Suspect]
     Active Substance: ACLIDINIUM BROMIDE
     Indication: ASTHMA
     Dosage: 320 UG, 1X2, DAILY
     Route: 055
     Dates: start: 20170824, end: 20191021

REACTIONS (1)
  - Syncope [Unknown]

NARRATIVE: CASE EVENT DATE: 20171110
